FAERS Safety Report 24661217 (Version 1)
Quarter: 2024Q4

REPORT INFORMATION
  Report Type: Spontaneous
  Country: US (occurrence: US)
  Receive Date: 20241125
  Receipt Date: 20241125
  Transmission Date: 20250115
  Serious: No
  Sender: AVADEL CNS PHARMACEUTICALS, LLC
  Company Number: US-AVADEL CNS PHARMACEUTICALS, LLC-2024AVA01555

PATIENT
  Sex: Female

DRUGS (19)
  1. LUMRYZ [Suspect]
     Active Substance: SODIUM OXYBATE
     Indication: Narcolepsy
     Dosage: 4.5 G, ONCE NIGHTLY
     Route: 048
     Dates: start: 20240708, end: 2024
  2. LUMRYZ [Suspect]
     Active Substance: SODIUM OXYBATE
     Indication: Narcolepsy
     Dosage: 7.5 G, ONCE NIGHTLY
     Route: 048
     Dates: start: 2024, end: 2024
  3. LUMRYZ [Suspect]
     Active Substance: SODIUM OXYBATE
     Dosage: 7.5 G, ONCE NIGHTLY AT BEDTIME
     Route: 048
     Dates: start: 2024, end: 202409
  4. WAKIX [Concomitant]
     Active Substance: PITOLISANT HYDROCHLORIDE
     Dosage: UNK
  5. PROGESTERONE [Concomitant]
     Active Substance: PROGESTERONE
     Dosage: UNK
     Dates: start: 20150925
  6. ALCOHOL [Concomitant]
     Active Substance: ALCOHOL
     Dosage: UNK
     Dates: start: 20240929
  7. NUVIGIL [Concomitant]
     Active Substance: ARMODAFINIL
     Dosage: UNK
     Dates: start: 20151016
  8. ELESTRIN [Concomitant]
     Active Substance: ESTRADIOL
     Dosage: UNK
     Dates: start: 20151023
  9. DOXEPIN [Concomitant]
     Active Substance: DOXEPIN
  10. MIRALAX [Concomitant]
     Active Substance: POLYETHYLENE GLYCOL 3350
  11. SENOKOT [Concomitant]
     Active Substance: SENNOSIDES
  12. VITAMIN D3 [Concomitant]
     Active Substance: CHOLECALCIFEROL
  13. VITAMINS NOS [Concomitant]
     Active Substance: VITAMINS
  14. KLOR-CON M10 [Concomitant]
     Active Substance: POTASSIUM CHLORIDE
  15. PRAVACHOL [Concomitant]
     Active Substance: PRAVASTATIN SODIUM
  16. KLONOPIN [Concomitant]
     Active Substance: CLONAZEPAM
  17. HYDROCHLOROTHIAZIDE\LOSARTAN POTASSIUM [Concomitant]
     Active Substance: HYDROCHLOROTHIAZIDE\LOSARTAN POTASSIUM
  18. INDERAL [Concomitant]
     Active Substance: PROPRANOLOL HYDROCHLORIDE
  19. FLOMAX [Concomitant]
     Active Substance: TAMSULOSIN HYDROCHLORIDE

REACTIONS (14)
  - Chapped lips [Not Recovered/Not Resolved]
  - Lip dry [Unknown]
  - Eyelid function disorder [Unknown]
  - Middle insomnia [Unknown]
  - Nocturia [Unknown]
  - Drug ineffective [Unknown]
  - Fall [Unknown]
  - Head injury [Unknown]
  - Somnambulism [Unknown]
  - Memory impairment [Not Recovered/Not Resolved]
  - Neck pain [Unknown]
  - Paraesthesia [Unknown]
  - Contusion [Unknown]
  - Fear [Unknown]

NARRATIVE: CASE EVENT DATE: 20240101
